FAERS Safety Report 8681117 (Version 4)
Quarter: 2013Q3

REPORT INFORMATION
  Report Type: Report from Study
  Country: JP (occurrence: JP)
  Receive Date: 20120725
  Receipt Date: 20130729
  Transmission Date: 20140515
  Serious: Yes (Hospitalization)
  Sender: FDA-Public Use
  Company Number: JP-AMGEN-JPNSP2012045070

PATIENT
  Age: 84 Year
  Sex: Female
  Weight: 41 kg

DRUGS (9)
  1. ROMIPLOSTIM - KHK [Suspect]
     Indication: IMMUNE THROMBOCYTOPENIC PURPURA
     Dosage: 1 MUG/KG, QWK
     Route: 058
     Dates: start: 20120703, end: 20120710
  2. PLATELETS [Concomitant]
     Dosage: UNK
     Dates: start: 20120703, end: 20120705
  3. TAKEPRON [Concomitant]
     Dosage: 30 MG, BID
     Route: 048
     Dates: start: 20120710
  4. SAWACILLIN [Concomitant]
     Dosage: 750 MG, BID
     Route: 048
     Dates: start: 20120710
  5. CLARITH [Concomitant]
     Dosage: 200 MG, BID
     Route: 048
     Dates: start: 20120710
  6. AMLODIPINE [Concomitant]
     Dosage: 5 MG, QD
     Route: 048
  7. OLMETEC [Concomitant]
     Indication: HYPERTENSION
     Dosage: 20 MG, QD
     Route: 048
  8. LOCHOL [Concomitant]
     Indication: DYSLIPIDAEMIA
     Dosage: 10 MG, QD
     Route: 048
  9. AMLODIN [Concomitant]
     Indication: HYPERTENSION
     Dosage: UNK
     Route: 048

REACTIONS (1)
  - Myocardial infarction [Recovering/Resolving]
